FAERS Safety Report 9831839 (Version 3)
Quarter: 2014Q1

REPORT INFORMATION
  Report Type: Report from Study
  Country: ZA (occurrence: ZA)
  Receive Date: 20140121
  Receipt Date: 20140328
  Transmission Date: 20141002
  Serious: Yes (Hospitalization)
  Sender: FDA-Public Use
  Company Number: ZA-SA-2014SA004559

PATIENT
  Age: 51 Year
  Sex: Male
  Weight: 95.5 kg

DRUGS (13)
  1. STUDY MEDICATION NOT GIVEN [Suspect]
     Indication: COLORECTAL CANCER METASTATIC
  2. IRINOTECAN [Suspect]
     Indication: COLORECTAL CANCER METASTATIC
     Route: 041
     Dates: start: 20131119, end: 20131119
  3. IRINOTECAN [Suspect]
     Indication: COLORECTAL CANCER METASTATIC
     Route: 041
     Dates: start: 20131212, end: 20131212
  4. 5-FU [Suspect]
     Indication: COLORECTAL CANCER METASTATIC
     Route: 041
     Dates: start: 20131119, end: 20131119
  5. 5-FU [Suspect]
     Indication: COLORECTAL CANCER METASTATIC
     Route: 040
     Dates: start: 20131119, end: 20131119
  6. 5-FU [Suspect]
     Indication: COLORECTAL CANCER METASTATIC
     Route: 040
     Dates: start: 20131213, end: 20131213
  7. 5-FU [Suspect]
     Indication: COLORECTAL CANCER METASTATIC
     Route: 041
     Dates: start: 20131213, end: 20131213
  8. LEUCOVORIN [Suspect]
     Indication: COLORECTAL CANCER METASTATIC
     Route: 041
     Dates: start: 20131119, end: 20131119
  9. LEUCOVORIN [Suspect]
     Indication: COLORECTAL CANCER METASTATIC
     Route: 041
     Dates: start: 20131213, end: 20131213
  10. BUSCOPAN [Concomitant]
  11. OMEZ [Concomitant]
  12. MEPHENESIN [Concomitant]
  13. MYPAID [Concomitant]

REACTIONS (5)
  - Deep vein thrombosis [Recovered/Resolved]
  - International normalised ratio increased [Recovering/Resolving]
  - Oropharyngeal pain [Recovered/Resolved]
  - Feeling abnormal [Recovered/Resolved]
  - Superior vena cava syndrome [Recovered/Resolved]
